FAERS Safety Report 8028870-9 (Version None)
Quarter: 2012Q1

REPORT INFORMATION
  Report Type: 
  Country: None (occurrence: None)
  Receive Date: 20120106
  Receipt Date: 20120103
  Transmission Date: 20120608
  Serious: Yes (Other)
  Sender: FDA-Public Use
  Company Number: US-GLAXOSMITHKLINE-A0958047A

PATIENT
  Age: 81 Year
  Sex: Male

DRUGS (3)
  1. NEULASTA [Suspect]
     Indication: NEUTROPENIA
     Route: 065
     Dates: start: 20110919
  2. VELCADE [Suspect]
     Indication: MULTIPLE MYELOMA
     Route: 058
     Dates: start: 20110914
  3. MELPHALAN [Suspect]
     Indication: MULTIPLE MYELOMA
     Route: 048
     Dates: start: 20110914

REACTIONS (2)
  - NEUTROPHIL COUNT DECREASED [None]
  - NEUTROPENIA [None]
